FAERS Safety Report 23867679 (Version 1)
Quarter: 2024Q2

REPORT INFORMATION
  Report Type: Spontaneous
  Country: US (occurrence: US)
  Receive Date: 20240517
  Receipt Date: 20240517
  Transmission Date: 20240716
  Serious: No
  Sender: FDA-Public Use
  Company Number: US-SAMSUNG BIOEPIS-SB-2023-28630

PATIENT

DRUGS (3)
  1. BYOOVIZ [Suspect]
     Active Substance: RANIBIZUMAB-NUNA
     Indication: Product used for unknown indication
     Dosage: SDV (SINGLE DOSE VIAL), 0.05 ML; VIAL
     Route: 065
  2. BYOOVIZ [Suspect]
     Active Substance: RANIBIZUMAB-NUNA
     Dosage: UNKNOWN
     Route: 065
  3. BYOOVIZ [Suspect]
     Active Substance: RANIBIZUMAB-NUNA
     Dosage: UNKNOWN
     Route: 065

REACTIONS (2)
  - Intercepted product storage error [Unknown]
  - Product temperature excursion issue [Unknown]

NARRATIVE: CASE EVENT DATE: 20231017
